FAERS Safety Report 16840336 (Version 1)
Quarter: 2019Q3

REPORT INFORMATION
  Report Type: Spontaneous
  Country: US (occurrence: US)
  Receive Date: 20190923
  Receipt Date: 20190923
  Transmission Date: 20191005
  Serious: Yes (Hospitalization)
  Sender: FDA-Public Use
  Company Number: PHEH2019US039140

PATIENT

DRUGS (1)
  1. NITROFURANTOIN CAPSULES USP [Suspect]
     Active Substance: NITROFURANTOIN
     Indication: URINARY TRACT INFECTION
     Route: 065

REACTIONS (1)
  - Kidney infection [Unknown]
